FAERS Safety Report 9482300 (Version 1)
Quarter: 2013Q3

REPORT INFORMATION
  Report Type: Spontaneous
  Country: BR (occurrence: BR)
  Receive Date: 20130828
  Receipt Date: 20130828
  Transmission Date: 20140515
  Serious: Yes (Life-Threatening, Other)
  Sender: FDA-Public Use
  Company Number: BR-JNJFOC-20130813565

PATIENT
  Age: 18 Day
  Sex: Male

DRUGS (2)
  1. TYLEX [Suspect]
     Indication: EXPOSURE DURING BREAST FEEDING
     Route: 048
     Dates: start: 20130820, end: 20130820
  2. TYLEX [Suspect]
     Indication: EXPOSURE DURING BREAST FEEDING
     Route: 048
     Dates: start: 20130822, end: 20130822

REACTIONS (4)
  - Apparent death [Recovered/Resolved]
  - Dyspnoea [Recovered/Resolved]
  - Somnolence [Recovered/Resolved]
  - Vomiting [Recovered/Resolved]
